FAERS Safety Report 7775142-3 (Version None)
Quarter: 2011Q3

REPORT INFORMATION
  Report Type: 
  Country: None (occurrence: None)
  Receive Date: 20110923
  Receipt Date: 20110919
  Transmission Date: 20111222
  Serious: Yes (Other)
  Sender: FDA-Public Use
  Company Number: US-GENENTECH-306153

PATIENT
  Sex: Male

DRUGS (2)
  1. LUCENTIS [Suspect]
     Indication: PRODUCT USED FOR UNKNOWN INDICATION
     Dosage: UNK
     Dates: start: 20080701
  2. LUCENTIS [Suspect]
     Dosage: UNK
     Dates: start: 20080801

REACTIONS (2)
  - BLINDNESS UNILATERAL [None]
  - INTRAOCULAR PRESSURE INCREASED [None]
